FAERS Safety Report 16251512 (Version 1)
Quarter: 2019Q2

REPORT INFORMATION
  Report Type: Spontaneous
  Country: US (occurrence: US)
  Receive Date: 20190429
  Receipt Date: 20190429
  Transmission Date: 20190711
  Serious: No
  Sender: FDA-Public Use
  Company Number: US-TEVA-2019-US-1035753

PATIENT
  Sex: Male

DRUGS (1)
  1. PROPYLTHIOURACIL TABLETS [Suspect]
     Active Substance: PROPYLTHIOURACIL
     Route: 065

REACTIONS (1)
  - Urine alcohol test positive [Unknown]
